FAERS Safety Report 13245710 (Version 1)
Quarter: 2017Q1

REPORT INFORMATION
  Report Type: Spontaneous
  Country: UA (occurrence: UA)
  Receive Date: 20170217
  Receipt Date: 20170217
  Transmission Date: 20170428
  Serious: No
  Sender: FDA-Public Use
  Company Number: UA-PERNIX THERAPEUTICS-2016PT000152

PATIENT

DRUGS (1)
  1. CEDAX [Suspect]
     Active Substance: CEFTIBUTEN DIHYDRATE
     Indication: CYSTITIS
     Dosage: 400 MG, DAILY
     Route: 048
     Dates: start: 20160530, end: 20160603

REACTIONS (1)
  - Asymptomatic bacteriuria [Not Recovered/Not Resolved]

NARRATIVE: CASE EVENT DATE: 20160627
